FAERS Safety Report 9757514 (Version 1)
Quarter: 2013Q4

REPORT INFORMATION
  Report Type: Report from Study
  Country: US (occurrence: US)
  Receive Date: 20131216
  Receipt Date: 20131216
  Transmission Date: 20140711
  Serious: Yes (Other)
  Sender: FDA-Public Use
  Company Number: US-ROCHE-1318821

PATIENT
  Sex: 0

DRUGS (4)
  1. CAPECITABINE [Suspect]
     Indication: ANAL CANCER
     Dosage: IN COMBINATION CHEMOTHEAPY
     Route: 065
  2. CAPECITABINE [Suspect]
     Indication: RECTAL CANCER
     Dosage: 850 TO 1000 MG/M2 ALONE FOR SINGLE CHEMOTHERAPY.
     Route: 065
  3. 5-FU [Suspect]
     Indication: ANAL CANCER
     Dosage: 1000 MG/M2 ON DAYS 1-4 AND DAYS 29-32 OR 200-225 MG/M2 DAILY DURING RADIATION THERAPY
     Route: 065
  4. 5-FU [Suspect]
     Indication: RECTAL CANCER

REACTIONS (4)
  - Haematotoxicity [Unknown]
  - White blood cell disorder [Unknown]
  - Platelet disorder [Unknown]
  - Neutrophil count abnormal [Unknown]
